FAERS Safety Report 25842627 (Version 1)
Quarter: 2025Q3

REPORT INFORMATION
  Report Type: Spontaneous
  Country: GB (occurrence: GB)
  Receive Date: 20250924
  Receipt Date: 20250924
  Transmission Date: 20251021
  Serious: Yes (Hospitalization, Other)
  Sender: GRIFOLS
  Company Number: None

PATIENT
  Age: 7 Year
  Sex: Female
  Weight: 19.7 kg

DRUGS (2)
  1. XEMBIFY [Suspect]
     Active Substance: HUMAN IMMUNOGLOBULIN G
     Indication: Combined immunodeficiency
     Dosage: 6 GRAM, Q.2WK.
     Route: 058
     Dates: start: 20250806
  2. XEMBIFY [Suspect]
     Active Substance: HUMAN IMMUNOGLOBULIN G
     Dosage: 6 GRAM, Q.2WK.
     Route: 058
     Dates: start: 20250806

REACTIONS (10)
  - Necrotising fasciitis [Unknown]
  - Body temperature increased [Unknown]
  - Rash [Unknown]
  - Swelling [Unknown]
  - Infusion site vesicles [Unknown]
  - Infusion site scab [Unknown]
  - Infusion site reaction [Unknown]
  - Infusion site swelling [Unknown]
  - Infusion site erythema [Unknown]
  - Emotional distress [Unknown]

NARRATIVE: CASE EVENT DATE: 20250806
